FAERS Safety Report 21612258 (Version 2)
Quarter: 2023Q1

REPORT INFORMATION
  Report Type: Report from Study
  Country: US (occurrence: US)
  Receive Date: 20221118
  Receipt Date: 20230313
  Transmission Date: 20230417
  Serious: Yes (Other)
  Sender: FDA-Public Use
  Company Number: US-ABBVIE-4204433

PATIENT
  Age: 63 Year
  Sex: Female

DRUGS (2)
  1. HUMIRA [Suspect]
     Active Substance: ADALIMUMAB
     Indication: Psoriasis
     Route: 058
  2. HUMIRA [Suspect]
     Active Substance: ADALIMUMAB
     Dosage: FORM STRENGTH: 40MG
     Route: 058

REACTIONS (7)
  - Neoplasm malignant [Unknown]
  - COVID-19 [Recovered/Resolved]
  - Melanocytic naevus [Unknown]
  - Psoriasis [Unknown]
  - Fatigue [Unknown]
  - Skin mass [Unknown]
  - Impaired healing [Unknown]

NARRATIVE: CASE EVENT DATE: 20220901
